FAERS Safety Report 6268533-3 (Version None)
Quarter: 2009Q3

REPORT INFORMATION
  Report Type: 
  Country: None (occurrence: None)
  Receive Date: 20090713
  Receipt Date: 20090713
  Transmission Date: 20100115
  Serious: Yes (Other)
  Sender: FDA-Public Use
  Company Number: None

PATIENT
  Age: 28 Year
  Sex: Female
  Weight: 88.4514 kg

DRUGS (1)
  1. MIRENA [Suspect]
     Indication: CONTRACEPTION
     Dosage: INTRA-UTERINE
     Route: 015
     Dates: start: 20080824, end: 20090712

REACTIONS (5)
  - AMENORRHOEA [None]
  - COLD SWEAT [None]
  - FATIGUE [None]
  - METRORRHAGIA [None]
  - PYREXIA [None]
